FAERS Safety Report 8229120-0 (Version None)
Quarter: 2012Q1

REPORT INFORMATION
  Report Type: 
  Country: None (occurrence: None)
  Receive Date: 20120322
  Receipt Date: 20120314
  Transmission Date: 20120608
  Serious: No
  Sender: FDA-Public Use
  Company Number: US-PFIZER INC-2012067819

PATIENT
  Sex: Female
  Weight: 81.179 kg

DRUGS (3)
  1. CELEBREX [Suspect]
     Indication: ARTHRITIS
     Dosage: 200 MG DAILY
     Dates: start: 20120101, end: 20120301
  2. PIOGLITAZONE HYDROCHLORIDE/METFORMIN HYDROCHLORIDE [Concomitant]
     Indication: DIABETES MELLITUS
     Dosage: 15/500 MG, 2X/DAY
  3. INSULIN [Concomitant]
     Indication: DIABETES MELLITUS
     Dosage: UNK

REACTIONS (4)
  - LIMB INJURY [None]
  - PAIN IN EXTREMITY [None]
  - MALAISE [None]
  - JOINT RANGE OF MOTION DECREASED [None]
